FAERS Safety Report 6730998-8 (Version None)
Quarter: 2010Q2

REPORT INFORMATION
  Report Type: 
  Country: None (occurrence: None)
  Receive Date: 20100514
  Receipt Date: 20100427
  Transmission Date: 20101027
  Serious: Yes (Life-Threatening, Hospitalization)
  Sender: FDA-Public Use
  Company Number: APP201000311

PATIENT
  Age: 36 Year
  Sex: Male

DRUGS (3)
  1. CISPLATIN [Suspect]
     Indication: TESTIS CANCER
  2. ETOPOSIDE [Suspect]
     Indication: TESTIS CANCER
  3. BLEOMYCIN SULFATE [Suspect]
     Indication: TESTIS CANCER

REACTIONS (5)
  - AGITATION [None]
  - CAROTID ARTERY THROMBOSIS [None]
  - HAEMORRHAGIC CEREBRAL INFARCTION [None]
  - PULMONARY EMBOLISM [None]
  - THROMBOTIC CEREBRAL INFARCTION [None]
